FAERS Safety Report 7375835-6 (Version None)
Quarter: 2011Q1

REPORT INFORMATION
  Report Type: 
  Country: None (occurrence: None)
  Receive Date: 20110325
  Receipt Date: 20110317
  Transmission Date: 20110831
  Serious: Yes (Death, Hospitalization)
  Sender: FDA-Public Use
  Company Number: A0905573A

PATIENT
  Age: 74 Year
  Sex: Female

DRUGS (1)
  1. AVANDIA [Suspect]
     Route: 048
     Dates: start: 20010401, end: 20071101

REACTIONS (3)
  - CARDIAC FAILURE CONGESTIVE [None]
  - HYPOXIC-ISCHAEMIC ENCEPHALOPATHY [None]
  - SEPSIS [None]
